FAERS Safety Report 5857348-3 (Version None)
Quarter: 2008Q3

REPORT INFORMATION
  Report Type: 
  Country: None (occurrence: None)
  Receive Date: 20080822
  Receipt Date: 20080822
  Transmission Date: 20090109
  Serious: Yes (Disabling, Other)
  Sender: FDA-Public Use
  Company Number: None

PATIENT
  Age: 65 Year
  Sex: Female
  Weight: 50.8029 kg

DRUGS (2)
  1. LYRICA [Suspect]
     Dosage: 1 CAP 3X A DAY 6 DAYS LATER EFFECT STARTED
     Dates: start: 20080101
  2. NEURONTIN [Suspect]
     Dates: start: 20000101

REACTIONS (3)
  - DIZZINESS [None]
  - GAIT DISTURBANCE [None]
  - OEDEMA PERIPHERAL [None]
